FAERS Safety Report 9038717 (Version 1)
Quarter: 2013Q1

REPORT INFORMATION
  Report Type: Spontaneous
  Country: US (occurrence: None)
  Receive Date: 20130123
  Receipt Date: 20130123
  Transmission Date: 20140127
  Serious: Yes (Hospitalization)
  Sender: FDA-Public Use
  Company Number: None

PATIENT
  Age: 69 Year
  Sex: Female
  Weight: 51.4 kg

DRUGS (2)
  1. VIIBRYD [Suspect]
     Indication: DEPRESSION
     Route: 048
  2. PRAVASTATIN [Suspect]
     Route: 048

REACTIONS (6)
  - Fatigue [None]
  - Asthenia [None]
  - Myalgia [None]
  - Urinary tract infection [None]
  - Red blood cell sedimentation rate increased [None]
  - C-reactive protein increased [None]
